FAERS Safety Report 16868765 (Version 7)
Quarter: 2021Q1

REPORT INFORMATION
  Report Type: Spontaneous
  Country: US (occurrence: US)
  Receive Date: 20190930
  Receipt Date: 20210223
  Transmission Date: 20210419
  Serious: No
  Sender: FDA-Public Use
  Company Number: US-PFIZER INC-2019422505

PATIENT
  Age: 80 Year
  Sex: Female

DRUGS (3)
  1. IBRANCE [Suspect]
     Active Substance: PALBOCICLIB
     Indication: BREAST CANCER
     Dosage: 75 MG, CYCLIC (DAILY, 2 WEEK ON 1 WEEK OFF)
  2. IBRANCE [Suspect]
     Active Substance: PALBOCICLIB
     Dosage: 75 MG, CYCLIC (1X/DAY, 1 WEEK ON 1 WEEK OFF)
     Route: 048
     Dates: start: 20190919
  3. IBRANCE [Suspect]
     Active Substance: PALBOCICLIB
     Dosage: 75 MG, ALTERNATE DAY (EVERY OTHER DAY)
     Route: 048
     Dates: start: 2020

REACTIONS (11)
  - Lymphadenopathy [Unknown]
  - Trigger finger [Unknown]
  - Blood count abnormal [Unknown]
  - Abdominal discomfort [Unknown]
  - Neutrophil count decreased [Unknown]
  - Nausea [Unknown]
  - Tooth disorder [Unknown]
  - Fatigue [Unknown]
  - Pain in jaw [Unknown]
  - White blood cell count decreased [Unknown]
  - Infection [Unknown]

NARRATIVE: CASE EVENT DATE: 201909
